FAERS Safety Report 12559719 (Version 1)
Quarter: 2016Q3

REPORT INFORMATION
  Report Type: Spontaneous
  Country: US (occurrence: US)
  Receive Date: 20160715
  Receipt Date: 20160715
  Transmission Date: 20161109
  Serious: No
  Sender: FDA-Public Use
  Company Number: US-JNJFOC-20160606381

PATIENT
  Age: 42 Year
  Sex: Female
  Weight: 89.81 kg

DRUGS (1)
  1. SUDAFED [Suspect]
     Active Substance: PSEUDOEPHEDRINE HYDROCHLORIDE
     Indication: EAR DISCOMFORT
     Dosage: 1 TABLET
     Route: 048

REACTIONS (3)
  - Off label use [Unknown]
  - Therapeutic response unexpected [Unknown]
  - Product use issue [Unknown]
